FAERS Safety Report 5974243-X (Version None)
Quarter: 2008Q4

REPORT INFORMATION
  Report Type: 
  Country: None (occurrence: None)
  Receive Date: 20081201
  Receipt Date: 20081125
  Transmission Date: 20090506
  Serious: Yes (Hospitalization, Other)
  Sender: FDA-Public Use
  Company Number: US-PFIZER INC-2008091137

PATIENT
  Sex: Male
  Weight: 81.6 kg

DRUGS (3)
  1. DILANTIN [Suspect]
     Indication: CONVULSION
     Route: 048
     Dates: start: 20040101
  2. ACETYLSALICYLIC ACID SRT [Concomitant]
  3. VITAMIN E [Concomitant]

REACTIONS (4)
  - CHRONIC OBSTRUCTIVE PULMONARY DISEASE [None]
  - CONVULSION [None]
  - MYOCARDIAL INFARCTION [None]
  - RESPIRATORY DISORDER [None]
